FAERS Safety Report 15691499 (Version 1)
Quarter: 2018Q4

REPORT INFORMATION
  Report Type: Spontaneous
  Country: US (occurrence: US)
  Receive Date: 20181205
  Receipt Date: 20181205
  Transmission Date: 20190205
  Serious: No
  Sender: FDA-Public Use
  Company Number: US-BAYER-2018-222928

PATIENT
  Age: 65 Year
  Sex: Male
  Weight: 77 kg

DRUGS (1)
  1. ALEVE [Suspect]
     Active Substance: NAPROXEN SODIUM
     Indication: MUSCLE RELAXANT THERAPY
     Dosage: 2 DF, IRR
     Route: 048
     Dates: start: 2008

REACTIONS (2)
  - Wrong technique in product usage process [Unknown]
  - Product use in unapproved indication [Unknown]

NARRATIVE: CASE EVENT DATE: 2008
